FAERS Safety Report 7110164-7 (Version None)
Quarter: 2010Q4

REPORT INFORMATION
  Report Type: 
  Country: None (occurrence: None)
  Receive Date: 20101118
  Receipt Date: 20101104
  Transmission Date: 20110411
  Serious: Yes (Hospitalization, Other)
  Sender: FDA-Public Use
  Company Number: PHFR2010GB04213

PATIENT
  Sex: Female

DRUGS (14)
  1. CLOZAPINE [Suspect]
     Dosage: UNK
     Route: 048
     Dates: start: 20100823
  2. DIAZEPAM [Concomitant]
     Indication: ANXIETY
     Dosage: 10MG DAILY
     Route: 048
  3. VENLAFAXINE [Concomitant]
     Indication: DEPRESSION
     Dosage: UNK
     Route: 048
  4. MIRTAZAPINE [Concomitant]
     Indication: DEPRESSION
     Dosage: UNK
     Route: 048
  5. FUROSEMIDE [Concomitant]
     Dosage: 40MG
     Route: 048
  6. WARFARIN [Concomitant]
     Dosage: VARIABLE
     Route: 048
  7. RAMIPRIL [Concomitant]
     Dosage: UNK
     Route: 048
  8. ATORVASTATIN [Concomitant]
     Dosage: UNK
     Route: 048
  9. CETIRIZINE HCL [Concomitant]
     Dosage: UNK
     Route: 048
  10. TOLTERODINE TARTRATE [Concomitant]
     Dosage: 1 MG, BID
     Route: 048
  11. LANSOPRAZOLE [Concomitant]
     Dosage: UNK
     Route: 048
  12. METFORMIN [Concomitant]
     Dosage: 1 MG, BID
     Route: 048
  13. SERETIDE ^ALLEN + HANBURYS LTD^ [Concomitant]
     Dosage: 2 UNK, BID
     Route: 048
  14. OXYGEN [Concomitant]
     Dosage: UNK

REACTIONS (7)
  - CELLULITIS [None]
  - GENERAL PHYSICAL HEALTH DETERIORATION [None]
  - INFECTION [None]
  - LOWER RESPIRATORY TRACT INFECTION [None]
  - MALAISE [None]
  - MOBILITY DECREASED [None]
  - URINARY TRACT INFECTION [None]
